FAERS Safety Report 8517857-5 (Version None)
Quarter: 2012Q3

REPORT INFORMATION
  Report Type: 
  Country: None (occurrence: None)
  Receive Date: 20120718
  Receipt Date: 20110628
  Transmission Date: 20120928
  Serious: No
  Sender: FDA-Public Use
  Company Number: US-BRISTOL-MYERS SQUIBB COMPANY-15846835

PATIENT
  Age: 80 Year
  Sex: Female

DRUGS (4)
  1. COUMADIN [Suspect]
     Indication: HEART RATE IRREGULAR
     Dosage: ALSO 2MG
     Dates: start: 20110501
  2. ALLEGRA [Concomitant]
  3. POTASSIUM CHLORIDE [Concomitant]
     Dosage: POTASSIUM PILL
  4. CALCIUM CARBONATE [Concomitant]

REACTIONS (1)
  - SKIN DISCOLOURATION [None]
